FAERS Safety Report 6758818-6 (Version None)
Quarter: 2010Q2

REPORT INFORMATION
  Report Type: 
  Country: None (occurrence: None)
  Receive Date: 20100607
  Receipt Date: 20100528
  Transmission Date: 20101027
  Serious: No
  Sender: FDA-Public Use
  Company Number: JP-ABBOTT-10P-087-0630118-00

PATIENT
  Age: 8 Year
  Sex: Female
  Weight: 38 kg

DRUGS (5)
  1. LEUPLIN FOR INJECTION 1.88 MG [Suspect]
     Indication: PRECOCIOUS PUBERTY
     Route: 058
     Dates: start: 20091015, end: 20100120
  2. INFLUENZA HA VACCINE H1N1 [Suspect]
     Indication: ANTIVIRAL PROPHYLAXIS
     Route: 058
     Dates: start: 20091124, end: 20091124
  3. INFLUENZA HA VACCINE H1N1 [Suspect]
     Route: 058
     Dates: start: 20091208, end: 20091208
  4. CLARITIN [Concomitant]
     Indication: SEASONAL ALLERGY
     Route: 048
     Dates: start: 20100126
  5. ZADITEN NASAL SOLUTION [Concomitant]
     Indication: SEASONAL ALLERGY
     Dosage: 1 PUFF 1-4 TIMES/DAY
     Dates: start: 20100128

REACTIONS (5)
  - INJECTION SITE ERYTHEMA [None]
  - INJECTION SITE RASH [None]
  - INJECTION SITE SWELLING [None]
  - INJECTION SITE VESICLES [None]
  - VACCINATION SITE SWELLING [None]
